FAERS Safety Report 16123120 (Version 2)
Quarter: 2019Q1

REPORT INFORMATION
  Report Type: Report from Study
  Country: US (occurrence: US)
  Receive Date: 20190327
  Receipt Date: 20190328
  Transmission Date: 20190418
  Serious: Yes (Hospitalization)
  Sender: FDA-Public Use
  Company Number: US-GILEAD-2019-0394250

PATIENT
  Age: 83 Year
  Sex: Female

DRUGS (39)
  1. BENEFIBER [DEXTRIN] [Concomitant]
  2. GLUCAGON. [Concomitant]
     Active Substance: GLUCAGON
  3. KOMBIGLYZE XR [Concomitant]
     Active Substance: METFORMIN HYDROCHLORIDE\SAXAGLIPTIN HYDROCHLORIDE
  4. MIRALAX [Concomitant]
     Active Substance: POLYETHYLENE GLYCOL 3350
  5. AMBRISENTAN [Suspect]
     Active Substance: AMBRISENTAN
     Indication: PULMONARY ARTERIAL HYPERTENSION
     Dosage: 10 MG, QD
     Route: 065
     Dates: start: 20140430
  6. BUMETANIDE. [Concomitant]
     Active Substance: BUMETANIDE
  7. PANTOPRAZOLE [Concomitant]
     Active Substance: PANTOPRAZOLE
  8. SOTALOL. [Concomitant]
     Active Substance: SOTALOL
  9. CELEXA [CELECOXIB] [Concomitant]
     Active Substance: CELECOXIB
  10. MAGNESIUM [Concomitant]
     Active Substance: MAGNESIUM
  11. PROBIOTICS NOS [Concomitant]
     Active Substance: PROBIOTICS NOS
  12. SENNALAX [SENNA ALEXANDRINA EXTRACT] [Concomitant]
  13. TOVIAZ [Concomitant]
     Active Substance: FESOTERODINE FUMARATE
  14. VITAMIN D3 [Concomitant]
     Active Substance: CHOLECALCIFEROL
  15. COLACE [Concomitant]
     Active Substance: DOCUSATE SODIUM
  16. DULCOLAX (BISACODYL) [Concomitant]
     Active Substance: BISACODYL
  17. FLORASTOR [LACTOBACILLUS ACIDOPHILUS] [Concomitant]
  18. FOSAMAX [Concomitant]
     Active Substance: ALENDRONATE SODIUM
  19. MELATONIN [Concomitant]
     Active Substance: MELATONIN
  20. NEURONTIN [Concomitant]
     Active Substance: GABAPENTIN
  21. PRAVACHOL [Concomitant]
     Active Substance: PRAVASTATIN SODIUM
  22. SYSTANE (HYPROMELLOSE 2910 (4000 MPA.S)) [Concomitant]
     Active Substance: HYPROMELLOSE 2910 (4000 MPA.S)
  23. VESICARE [Concomitant]
     Active Substance: SOLIFENACIN SUCCINATE
  24. FENTANYL. [Concomitant]
     Active Substance: FENTANYL
  25. TRAMADOL. [Concomitant]
     Active Substance: TRAMADOL
  26. ALBUTEROL [SALBUTAMOL] [Concomitant]
     Active Substance: ALBUTEROL
  27. BUMEX [Concomitant]
     Active Substance: BUMETANIDE
  28. IMODIUM [Concomitant]
     Active Substance: LOPERAMIDE HYDROCHLORIDE
  29. PROTONIX [OMEPRAZOLE] [Concomitant]
     Active Substance: OMEPRAZOLE
  30. TYLENOL [Concomitant]
     Active Substance: ACETAMINOPHEN
  31. FERROUS SULFATE. [Concomitant]
     Active Substance: FERROUS SULFATE
  32. METFORMIN [Concomitant]
     Active Substance: METFORMIN HYDROCHLORIDE
  33. PRESERVISION [Concomitant]
     Active Substance: MINERALS\VITAMINS
  34. REQUIP [Concomitant]
     Active Substance: ROPINIROLE HYDROCHLORIDE
  35. VENLAFAXINE [Concomitant]
     Active Substance: VENLAFAXINE HYDROCHLORIDE
  36. EFFEXOR [Concomitant]
     Active Substance: VENLAFAXINE HYDROCHLORIDE
  37. FLEET [GLYCEROL] [Concomitant]
  38. MILK OF MAGNESIA [Concomitant]
     Active Substance: MAGNESIUM HYDROXIDE
  39. ZOFRAN [Concomitant]
     Active Substance: ONDANSETRON HYDROCHLORIDE

REACTIONS (3)
  - Injury [Unknown]
  - Intentional dose omission [Not Recovered/Not Resolved]
  - Ill-defined disorder [Unknown]
